FAERS Safety Report 7237514-5 (Version None)
Quarter: 2011Q1

REPORT INFORMATION
  Report Type: 
  Country: None (occurrence: None)
  Receive Date: 20110121
  Receipt Date: 20110117
  Transmission Date: 20110831
  Serious: Yes (Life-Threatening, Hospitalization, Other)
  Sender: FDA-Public Use
  Company Number: FR-PFIZER INC-2010179332

PATIENT
  Age: 62 Year
  Sex: Male

DRUGS (17)
  1. IMUREL [Suspect]
     Dosage: 2X DAILY
  2. ACTONEL [Concomitant]
     Dosage: 35 MG, WEEKLY
  3. MEDROL [Suspect]
     Indication: CROHN'S DISEASE
     Dosage: 16 MG, 2X/DAY
     Route: 048
     Dates: start: 20100111, end: 20100201
  4. HUMALOG [Concomitant]
     Dosage: 8 IU, 3X/DAY
  5. CACIT D3 [Concomitant]
  6. SPASFON [Concomitant]
  7. HEPARIN SODIUM [Suspect]
  8. CLAMOXYL [Concomitant]
     Dosage: 1 G, 3X/DAY
  9. MEDROL [Suspect]
     Dosage: 8 MG, DAILY
     Dates: start: 20100201, end: 20100201
  10. LANTUS [Concomitant]
     Dosage: 15 IU, 1X/DAY
  11. OFLOCET [Concomitant]
     Dosage: 200 UNK, 2X/DAY
  12. NEXIUM [Concomitant]
  13. REMICADE [Suspect]
     Indication: CROHN'S DISEASE
     Dosage: 1 DF, CYCLIC
     Route: 042
     Dates: start: 20100122, end: 20100205
  14. IMUREL [Suspect]
     Indication: CROHN'S DISEASE
     Dosage: 150 MG, DAILY
     Route: 048
     Dates: start: 20100122, end: 20100220
  15. MEDROL [Suspect]
     Dosage: 24 MG, DAILY
     Dates: start: 20100226
  16. FLAGYL [Concomitant]
  17. SMECTA ^IPSEN^ [Concomitant]

REACTIONS (8)
  - HEPARIN-INDUCED THROMBOCYTOPENIA [None]
  - MUSCULOSKELETAL DISORDER [None]
  - PNEUMOCYSTIS JIROVECI PNEUMONIA [None]
  - DIARRHOEA [None]
  - PULMONARY EMBOLISM [None]
  - PNEUMOTHORAX [None]
  - DEEP VEIN THROMBOSIS [None]
  - WEIGHT DECREASED [None]
